FAERS Safety Report 10221396 (Version 1)
Quarter: 2014Q2

REPORT INFORMATION
  Report Type: Spontaneous
  Country: SE (occurrence: SE)
  Receive Date: 20140606
  Receipt Date: 20140606
  Transmission Date: 20141212
  Serious: Yes (Other)
  Sender: FDA-Public Use
  Company Number: SE-SA-2014SA073228

PATIENT
  Sex: Male

DRUGS (1)
  1. STILNOCT [Suspect]
     Indication: INSOMNIA
     Route: 065

REACTIONS (3)
  - Road traffic accident [Unknown]
  - Impaired driving ability [Unknown]
  - Somnambulism [Unknown]
